FAERS Safety Report 9281597 (Version 2)
Quarter: 2013Q2

REPORT INFORMATION
  Report Type: Spontaneous
  Country: US (occurrence: US)
  Receive Date: 20130509
  Receipt Date: 20130619
  Transmission Date: 20140414
  Serious: Yes (Death)
  Sender: FDA-Public Use
  Company Number: US-GILEAD-2013-0074829

PATIENT
  Sex: Male

DRUGS (12)
  1. LETAIRIS [Suspect]
     Indication: PRODUCT USED FOR UNKNOWN INDICATION
     Dosage: 5 MG, QD
     Dates: start: 20130322
  2. OXYGEN [Concomitant]
  3. PREDNISONE [Concomitant]
  4. ATIVAN [Concomitant]
  5. ALLOPURINOL [Concomitant]
  6. MSIR [Concomitant]
  7. DALIRESP [Concomitant]
  8. ASPIRIN [Concomitant]
  9. DIGOXIN [Concomitant]
  10. DILTIAZEM [Concomitant]
  11. LASIX                              /00032601/ [Concomitant]
  12. GUAIFENESIN [Concomitant]

REACTIONS (3)
  - Respiratory failure [Fatal]
  - Pulmonary hypertension [Fatal]
  - Chronic obstructive pulmonary disease [Fatal]
